FAERS Safety Report 8614070-8 (Version None)
Quarter: 2012Q3

REPORT INFORMATION
  Report Type: 
  Country: None (occurrence: None)
  Receive Date: 20120823
  Receipt Date: 20120814
  Transmission Date: 20120928
  Serious: Yes (Life-Threatening)
  Sender: FDA-Public Use
  Company Number: RU-BAYER-2012-064271

PATIENT
  Age: 34 Year
  Sex: Female
  Weight: 64.853 kg

DRUGS (1)
  1. DROSPIRENONE AND ETHINYL ESTRADIOL [Suspect]
     Indication: CONTRACEPTION
     Dosage: UNK
     Route: 048
     Dates: start: 20100419, end: 20120422

REACTIONS (4)
  - CEREBROVASCULAR DISORDER [None]
  - HEMIANOPIA [None]
  - TRANSIENT ISCHAEMIC ATTACK [None]
  - ISCHAEMIC STROKE [None]
